FAERS Safety Report 14073901 (Version 1)
Quarter: 2017Q4

REPORT INFORMATION
  Report Type: Spontaneous
  Country: US (occurrence: None)
  Receive Date: 20171011
  Receipt Date: 20171011
  Transmission Date: 20180321
  Serious: Yes (Hospitalization)
  Sender: FDA-Public Use
  Company Number: None

PATIENT
  Age: 73 Year
  Sex: Female
  Weight: 88.45 kg

DRUGS (8)
  1. VITAMIN D3 [Concomitant]
     Active Substance: CHOLECALCIFEROL
  2. DILTIAZEM. [Concomitant]
     Active Substance: DILTIAZEM
  3. FISH OIL [Concomitant]
     Active Substance: FISH OIL
  4. ELIQUIS [Concomitant]
     Active Substance: APIXABAN
  5. KYOLIC (AGED GARLIC EXTRACT) [Concomitant]
  6. MULTIVITAMIN B COMPLEX [Concomitant]
  7. PHILLIPS COLON HEALTH [Concomitant]
  8. FLECAINIDE 50MG TABLETS [Suspect]
     Active Substance: FLECAINIDE ACETATE
     Indication: ATRIAL FIBRILLATION
     Route: 048
     Dates: start: 20170915, end: 20170923

REACTIONS (1)
  - Atrial fibrillation [None]

NARRATIVE: CASE EVENT DATE: 20170923
